FAERS Safety Report 10342293 (Version 3)
Quarter: 2014Q3

REPORT INFORMATION
  Report Type: Spontaneous
  Country: JP (occurrence: JP)
  Receive Date: 20140725
  Receipt Date: 20140804
  Transmission Date: 20150326
  Serious: Yes (Hospitalization, Other)
  Sender: FDA-Public Use
  Company Number: JP-BAYER-2014-081800

PATIENT
  Age: 78 Year
  Sex: Female
  Weight: 49 kg

DRUGS (6)
  1. URSO [Concomitant]
     Active Substance: URSODIOL
     Indication: BILIARY CIRRHOSIS PRIMARY
     Dosage: UNK
     Route: 048
     Dates: start: 20080305
  2. XARELTO [Concomitant]
     Active Substance: RIVAROXABAN
     Dosage: DAILY DOSE 10 MG
     Route: 048
     Dates: start: 20140324
  3. TAMBOCOR [Concomitant]
     Active Substance: FLECAINIDE ACETATE
     Indication: ATRIAL FIBRILLATION
     Dosage: DAILY DOSE 100 MG
     Route: 048
     Dates: start: 20140324
  4. LIVACT [Concomitant]
     Indication: BILIARY CIRRHOSIS PRIMARY
     Dosage: 4.15 G, TID
     Route: 048
     Dates: start: 20110613
  5. NEXAVAR [Suspect]
     Active Substance: SORAFENIB
     Indication: HEPATOCELLULAR CARCINOMA
     Dosage: DAILY DOSE 400 MG
     Route: 048
     Dates: start: 20140527, end: 20140527
  6. NEXAVAR [Suspect]
     Active Substance: SORAFENIB
     Indication: HEPATOCELLULAR CARCINOMA
     Dosage: 800 MG, QD
     Route: 048
     Dates: start: 20140515, end: 20140526

REACTIONS (6)
  - Renal impairment [Recovered/Resolved]
  - Blood sodium decreased [None]
  - Anaemia [Recovering/Resolving]
  - Platelet count decreased [Recovering/Resolving]
  - Hepatic encephalopathy [Recovered/Resolved]
  - Hypertension [None]

NARRATIVE: CASE EVENT DATE: 20140516
